FAERS Safety Report 18148350 (Version 2)
Quarter: 2020Q3

REPORT INFORMATION
  Report Type: Spontaneous
  Country: US (occurrence: US)
  Receive Date: 20200813
  Receipt Date: 20200827
  Transmission Date: 20201103
  Serious: No
  Sender: FDA-Public Use
  Company Number: US-JNJFOC-20200809286

PATIENT
  Age: 69 Year
  Sex: Male
  Weight: 68.1 kg

DRUGS (1)
  1. XARELTO [Suspect]
     Active Substance: RIVAROXABAN
     Indication: THROMBOSIS
     Route: 048
     Dates: start: 201902

REACTIONS (3)
  - Weight decreased [Unknown]
  - Product physical issue [Unknown]
  - Product label issue [Unknown]

NARRATIVE: CASE EVENT DATE: 20200729
